FAERS Safety Report 8267596-3 (Version None)
Quarter: 2012Q2

REPORT INFORMATION
  Report Type: 
  Country: None (occurrence: None)
  Receive Date: 20120409
  Receipt Date: 20120329
  Transmission Date: 20120825
  Serious: Yes (Hospitalization, Other)
  Sender: FDA-Public Use
  Company Number: BE-ELI_LILLY_AND_COMPANY-BE201203002851

PATIENT
  Age: 23 Year
  Sex: Male

DRUGS (2)
  1. OLANZAPINE [Suspect]
     Dosage: 405 MG, UNKNOWN
     Route: 030
     Dates: start: 20120306
  2. OLANZAPINE [Suspect]
     Indication: SCHIZOPHRENIA
     Dosage: 300 MG, UNKNOWN
     Route: 030

REACTIONS (5)
  - SEDATION [None]
  - DYSARTHRIA [None]
  - BRADYCARDIA [None]
  - ASTHENIA [None]
  - DIZZINESS [None]
